FAERS Safety Report 9167730 (Version 2)
Quarter: 2013Q3

REPORT INFORMATION
  Report Type: Report from Study
  Country: US (occurrence: US)
  Receive Date: 20130318
  Receipt Date: 20130806
  Transmission Date: 20140515
  Serious: Yes (Hospitalization, Other)
  Sender: FDA-Public Use
  Company Number: PHEH2013US006176

PATIENT
  Sex: Male

DRUGS (6)
  1. EXELON PATCH [Suspect]
     Dosage: 4.6 MG, UNK
     Route: 062
  2. EXELON PATCH [Suspect]
     Dosage: 9.5 MG, QD
     Route: 062
     Dates: end: 20130329
  3. LORAZEPAM [Concomitant]
  4. PREDNISONE [Concomitant]
  5. LIPITOR [Concomitant]
  6. AZATHIOPRINE [Concomitant]

REACTIONS (6)
  - Colitis [Recovering/Resolving]
  - Gastrointestinal disorder [Recovering/Resolving]
  - Muscle spasms [Recovering/Resolving]
  - Drug intolerance [Recovering/Resolving]
  - Tremor [Recovering/Resolving]
  - Drug ineffective [Recovering/Resolving]
